FAERS Safety Report 23082702 (Version 1)
Quarter: 2023Q4

REPORT INFORMATION
  Report Type: Spontaneous
  Country: US (occurrence: US)
  Receive Date: 20231019
  Receipt Date: 20231019
  Transmission Date: 20240109
  Serious: Yes (Hospitalization, Other)
  Sender: FDA-Public Use
  Company Number: US-HIKMA PHARMACEUTICALS USA INC.-US-H14001-23-66024

PATIENT

DRUGS (6)
  1. METHOTREXATE [Suspect]
     Active Substance: METHOTREXATE
     Indication: Autoimmune disorder
     Dosage: UNK
     Route: 065
  2. PREDNISONE [Suspect]
     Active Substance: PREDNISONE
     Indication: Autoimmune disorder
     Dosage: 5 MILLIGRAM
     Route: 065
  3. PREDNISONE [Suspect]
     Active Substance: PREDNISONE
     Dosage: TAPERED DOWN
     Route: 065
  4. HUMAN IMMUNOGLOBULIN G [Suspect]
     Active Substance: HUMAN IMMUNOGLOBULIN G
     Indication: Autoimmune disorder
     Dosage: UNK
     Route: 065
  5. RITUXAN [Suspect]
     Active Substance: RITUXIMAB
     Indication: Autoimmune disorder
     Dosage: UNK
     Route: 065
  6. IMURAN [Suspect]
     Active Substance: AZATHIOPRINE
     Indication: Autoimmune disorder
     Dosage: UNK
     Route: 065

REACTIONS (4)
  - Malaise [Unknown]
  - Pain [Unknown]
  - COVID-19 [Unknown]
  - Thrombosis [Unknown]

NARRATIVE: CASE EVENT DATE: 20230601
